FAERS Safety Report 5234280-X (Version None)
Quarter: 2007Q1

REPORT INFORMATION
  Report Type: 
  Country: None (occurrence: None)
  Receive Date: 20070209
  Receipt Date: 20070202
  Transmission Date: 20070707
  Serious: Yes (Hospitalization)
  Sender: FDA-Public Use
  Company Number: PHRM2006FR03280

PATIENT
  Age: 82 Year
  Sex: Male

DRUGS (8)
  1. VOLTAREN [Suspect]
     Route: 048
  2. ESIDRIX [Suspect]
     Dosage: 25 MG, QD
     Route: 048
  3. FUCIDINE CAP [Suspect]
     Indication: VARICOSE ULCERATION
     Dosage: 500 MG, BID
     Route: 048
     Dates: start: 20061008, end: 20061025
  4. FLAMMAZINE [Suspect]
     Route: 061
  5. TRIATEC [Suspect]
     Dosage: 5 MG, QD
     Route: 048
  6. VIRLIX [Concomitant]
     Route: 048
  7. BIAFINE [Concomitant]
     Route: 061
  8. DOLIPRANE [Concomitant]
     Route: 048

REACTIONS (11)
  - ANAEMIA [None]
  - DIVERTICULUM INTESTINAL [None]
  - GASTRITIS [None]
  - GASTROINTESTINAL HAEMORRHAGE [None]
  - LIVER DISORDER [None]
  - PANCREATIC DISORDER [None]
  - PANCYTOPENIA [None]
  - PLATELET COUNT DECREASED [None]
  - PURPURA [None]
  - RED BLOOD CELL COUNT DECREASED [None]
  - WHITE BLOOD CELL COUNT DECREASED [None]
